FAERS Safety Report 9876830 (Version 1)
Quarter: 2014Q1

REPORT INFORMATION
  Report Type: Spontaneous
  Country: AR (occurrence: AR)
  Receive Date: 20140206
  Receipt Date: 20140206
  Transmission Date: 20141002
  Serious: Yes (Hospitalization)
  Sender: FDA-Public Use
  Company Number: AR-AMGEN-ARGSP2014008131

PATIENT
  Age: 42 Year
  Sex: Female

DRUGS (4)
  1. ENBREL [Suspect]
     Indication: RHEUMATOID ARTHRITIS
     Dosage: 50 MG, WEEKLY
     Route: 065
     Dates: start: 20111028
  2. CORTIPYREN B [Concomitant]
     Dosage: UNK UNK, UNK
  3. HYDROXYCHLOROQUINE [Concomitant]
     Dosage: UNK UNK, UNK
  4. DICLOFENAC [Concomitant]
     Dosage: UNK UNK, UNK

REACTIONS (1)
  - Cholelithiasis [Recovering/Resolving]
